FAERS Safety Report 10714905 (Version 5)
Quarter: 2016Q1

REPORT INFORMATION
  Report Type: Report from Study
  Country: US (occurrence: US)
  Receive Date: 20150115
  Receipt Date: 20160108
  Transmission Date: 20160525
  Serious: Yes (Hospitalization, Disabling, Other)
  Sender: FDA-Public Use
  Company Number: US-ACTELION-A-US2015-111089

PATIENT
  Age: 73 Year
  Sex: Male

DRUGS (12)
  1. ALLOPURINOL. [Concomitant]
     Active Substance: ALLOPURINOL
  2. NOVOLOG [Concomitant]
     Active Substance: INSULIN ASPART
  3. POTASSIUM [Concomitant]
     Active Substance: POTASSIUM
  4. LANTUS [Concomitant]
     Active Substance: INSULIN GLARGINE
  5. IRON [Concomitant]
     Active Substance: IRON
  6. PREDNISONE. [Concomitant]
     Active Substance: PREDNISONE
  7. FUROSEMIDE. [Concomitant]
     Active Substance: FUROSEMIDE
  8. MACITENTAN [Suspect]
     Active Substance: MACITENTAN
     Indication: PULMONARY ARTERIAL HYPERTENSION
     Dosage: 10 MG, QD
     Route: 048
     Dates: start: 20141128
  9. SIMVASTATIN. [Concomitant]
     Active Substance: SIMVASTATIN
  10. BABY ASPIRIN [Concomitant]
     Active Substance: ASPIRIN
  11. METOLAZONE. [Concomitant]
     Active Substance: METOLAZONE
  12. MAGNESIUM [Concomitant]
     Active Substance: MAGNESIUM

REACTIONS (3)
  - Anaemia [Recovered/Resolved]
  - Transfusion [Recovered/Resolved]
  - Gastrointestinal haemorrhage [Recovering/Resolving]

NARRATIVE: CASE EVENT DATE: 20141226
